FAERS Safety Report 6275776-1 (Version None)
Quarter: 2009Q3

REPORT INFORMATION
  Report Type: 
  Country: None (occurrence: None)
  Receive Date: 20090721
  Receipt Date: 20090713
  Transmission Date: 20100115
  Serious: Yes (Other)
  Sender: FDA-Public Use
  Company Number: CL-JNJFOC-20090701917

PATIENT
  Sex: Female
  Weight: 67 kg

DRUGS (28)
  1. GOLIMUMAB [Suspect]
     Route: 058
  2. GOLIMUMAB [Suspect]
     Route: 058
  3. GOLIMUMAB [Suspect]
     Route: 058
  4. GOLIMUMAB [Suspect]
     Route: 058
  5. GOLIMUMAB [Suspect]
     Route: 058
  6. GOLIMUMAB [Suspect]
     Route: 058
  7. GOLIMUMAB [Suspect]
     Route: 058
  8. GOLIMUMAB [Suspect]
     Route: 058
  9. GOLIMUMAB [Suspect]
     Route: 058
  10. GOLIMUMAB [Suspect]
     Route: 058
  11. GOLIMUMAB [Suspect]
     Route: 058
  12. GOLIMUMAB [Suspect]
     Route: 058
  13. GOLIMUMAB [Suspect]
     Route: 058
  14. GOLIMUMAB [Suspect]
     Route: 058
  15. GOLIMUMAB [Suspect]
     Route: 058
  16. GOLIMUMAB [Suspect]
     Indication: RHEUMATOID ARTHRITIS
     Route: 058
  17. METHOTREXATE [Suspect]
     Indication: RHEUMATOID ARTHRITIS
     Route: 048
  18. METHOTREXATE [Concomitant]
     Route: 048
  19. DOLOSPAM [Concomitant]
     Route: 048
  20. ASPIRIN [Concomitant]
     Route: 048
  21. SERTRALINE [Concomitant]
     Route: 048
  22. PREDNISONE TAB [Concomitant]
     Route: 048
  23. ENALAPRIL MALEATE [Concomitant]
     Route: 048
  24. AMITRIPTYLINE [Concomitant]
     Route: 048
  25. METFORMIN HCL [Concomitant]
     Route: 048
  26. ALPRAZOLAM [Concomitant]
     Route: 048
  27. PARACETAMOL [Concomitant]
     Route: 048
  28. CYCLOBENZAPRINE [Concomitant]
     Route: 048

REACTIONS (1)
  - INFLUENZA [None]
